FAERS Safety Report 9159598 (Version 1)
Quarter: 2013Q1

REPORT INFORMATION
  Report Type: Spontaneous
  Country: US (occurrence: None)
  Receive Date: 20130312
  Receipt Date: 20130312
  Transmission Date: 20140127
  Serious: Yes (Other)
  Sender: FDA-Public Use
  Company Number: None

PATIENT
  Age: 30 Year
  Sex: Female
  Weight: 71.67 kg

DRUGS (1)
  1. SUMATRIPTAN [Suspect]
     Indication: MIGRAINE
     Dosage: 50MG 1 PO ?AS NEEDED -2X IN 6 MO-
     Route: 048
     Dates: start: 20120602, end: 20130304

REACTIONS (6)
  - Dizziness [None]
  - Asthenia [None]
  - Nausea [None]
  - Fatigue [None]
  - Dyspnoea [None]
  - Chest discomfort [None]
